FAERS Safety Report 11330884 (Version 1)
Quarter: 2015Q3

REPORT INFORMATION
  Report Type: Spontaneous
  Country: GB (occurrence: GB)
  Receive Date: 20150803
  Receipt Date: 20150803
  Transmission Date: 20151125
  Serious: Yes (Hospitalization, Other)
  Sender: FDA-Public Use
  Company Number: GB-TEVA-581748ACC

PATIENT
  Age: 69 Year
  Sex: Male
  Weight: 132 kg

DRUGS (11)
  1. FUROSEMIDE. [Concomitant]
     Active Substance: FUROSEMIDE
  2. METFORMIN [Concomitant]
     Active Substance: METFORMIN HYDROCHLORIDE
     Indication: DIABETES MELLITUS
  3. SAXAGLIPTIN [Concomitant]
     Active Substance: SAXAGLIPTIN
  4. PREDNISOLONE. [Concomitant]
     Active Substance: PREDNISOLONE
  5. ISOSORBIDE. [Concomitant]
     Active Substance: ISOSORBIDE
  6. BISOPROLOL [Concomitant]
     Active Substance: BISOPROLOL
  7. GLICLAZIDE [Concomitant]
     Active Substance: GLICLAZIDE
     Indication: DIABETES MELLITUS
     Dosage: 80 MILLIGRAM DAILY;
  8. FLUCLOXACILLIN [Concomitant]
     Active Substance: FLUCLOXACILLIN
     Indication: CELLULITIS
  9. CLARITHROMYCIN. [Suspect]
     Active Substance: CLARITHROMYCIN
     Indication: CELLULITIS
     Dosage: 1000 MILLIGRAM DAILY;
     Route: 048
     Dates: start: 20150626, end: 20150630
  10. BUTRANS [Concomitant]
     Active Substance: BUPRENORPHINE
  11. FELODIPINE. [Concomitant]
     Active Substance: FELODIPINE

REACTIONS (2)
  - Acute kidney injury [Recovered/Resolved]
  - Urine output decreased [Recovered/Resolved]

NARRATIVE: CASE EVENT DATE: 20150626
